FAERS Safety Report 24830352 (Version 4)
Quarter: 2025Q2

REPORT INFORMATION
  Report Type: Spontaneous
  Country: US (occurrence: US)
  Receive Date: 20250110
  Receipt Date: 20250606
  Transmission Date: 20250716
  Serious: No
  Sender: NOVEN
  Company Number: US-NOVEN PHARMACEUTICALS, INC.-2024-NOV-US001698

PATIENT
  Age: 44 Year
  Sex: Female
  Weight: 81.633 kg

DRUGS (6)
  1. XELSTRYM [Suspect]
     Active Substance: DEXTROAMPHETAMINE
     Indication: Attention deficit hyperactivity disorder
     Route: 062
     Dates: start: 20241119
  2. EPIPEN [Concomitant]
     Active Substance: EPINEPHRINE
     Indication: Dust allergy
     Route: 065
  3. EPIPEN [Concomitant]
     Active Substance: EPINEPHRINE
     Indication: Seasonal allergy
  4. EPIPEN [Concomitant]
     Active Substance: EPINEPHRINE
     Indication: Allergy to animal
  5. EPIPEN [Concomitant]
     Active Substance: EPINEPHRINE
     Indication: Hypersensitivity
  6. EPIPEN [Concomitant]
     Active Substance: EPINEPHRINE
     Indication: Food allergy

REACTIONS (6)
  - Therapeutic response unexpected [Recovered/Resolved]
  - Application site erythema [Recovered/Resolved]
  - Application site hypersensitivity [Unknown]
  - Application site irritation [Unknown]
  - Application site pain [Unknown]
  - Product residue present [Recovered/Resolved]

NARRATIVE: CASE EVENT DATE: 20241101
